FAERS Safety Report 6713786-8 (Version None)
Quarter: 2010Q2

REPORT INFORMATION
  Report Type: 
  Country: None (occurrence: None)
  Receive Date: 20100506
  Receipt Date: 20100423
  Transmission Date: 20101027
  Serious: Yes (Life-Threatening, Hospitalization)
  Sender: FDA-Public Use
  Company Number: GXKR2009DE03017

PATIENT
  Age: 77 Year
  Sex: Female
  Weight: 95 kg

DRUGS (9)
  1. GLIBENCLAMIDE (NGX) [Suspect]
     Indication: TYPE 2 DIABETES MELLITUS
     Dosage: 1.75 MG, QD
     Route: 048
     Dates: start: 20000101, end: 20080727
  2. FURORESE (NGX) [Interacting]
     Indication: RENAL IMPAIRMENT
     Dosage: 60 MG, QD
     Route: 048
     Dates: start: 20020101, end: 20080808
  3. METFORMIN HCL [Suspect]
     Indication: TYPE 2 DIABETES MELLITUS
     Dosage: 500 MG, BID
     Route: 048
     Dates: start: 19950101
  4. XIPAMIDE (NGX) [Suspect]
     Indication: HYPERTENSION
     Dosage: 20 MG, BID
     Route: 048
     Dates: start: 20000101
  5. LISINOPRIL [Interacting]
     Indication: HYPERTENSION
     Dosage: 10 MG, QD
     Route: 048
     Dates: start: 20030101, end: 20080727
  6. METOPROLOL [Concomitant]
     Indication: HYPERTENSION
     Dosage: 100 MG, BID
     Route: 048
     Dates: start: 19990101
  7. ASS ^CT-ARZNEIMITTEL^ [Concomitant]
     Route: 048
  8. PANTOZOL [Concomitant]
     Route: 048
  9. SIMVASTATIN [Concomitant]

REACTIONS (2)
  - HYPOGLYCAEMIA [None]
  - RENAL FAILURE ACUTE [None]
